FAERS Safety Report 6494170-1 (Version None)
Quarter: 2009Q4

REPORT INFORMATION
  Report Type: 
  Country: None (occurrence: None)
  Receive Date: 20091214
  Receipt Date: 20090114
  Transmission Date: 20100525
  Serious: Yes (Other)
  Sender: FDA-Public Use
  Company Number: US-BRISTOL-MYERS SQUIBB COMPANY-14471189

PATIENT
  Age: 64 Year
  Sex: Female

DRUGS (1)
  1. ABILIFY [Suspect]

REACTIONS (9)
  - ATRIAL FIBRILLATION [None]
  - DIARRHOEA [None]
  - DIZZINESS [None]
  - HEADACHE [None]
  - HYPERGLYCAEMIA [None]
  - HYPOGLYCAEMIA [None]
  - TARDIVE DYSKINESIA [None]
  - VISION BLURRED [None]
  - VOMITING [None]
